FAERS Safety Report 9223851 (Version 1)
Quarter: 2013Q2

REPORT INFORMATION
  Report Type: Spontaneous
  Country: US (occurrence: US)
  Receive Date: 20130411
  Receipt Date: 20130411
  Transmission Date: 20140414
  Serious: Yes (Other)
  Sender: FDA-Public Use
  Company Number: US-AMGEN-USASP2013024463

PATIENT
  Age: 22 Year
  Sex: Male
  Weight: 142.6 kg

DRUGS (11)
  1. NEUPOGEN [Suspect]
     Indication: BONE MARROW TRANSPLANT
     Dosage: 10 MUG/KG, UNK
     Route: 058
  2. IFOSFAMIDE/MESNA [Suspect]
     Dosage: UNK
  3. ADRIAMYCIN                         /00330901/ [Concomitant]
     Dosage: UNK
  4. BLEOMYCIN [Concomitant]
     Dosage: UNK
  5. VINBLASTINE [Concomitant]
     Dosage: UNK
  6. DACARBAZINE [Concomitant]
     Dosage: UNK
  7. ETOPOSIDE [Concomitant]
     Dosage: UNK
     Dates: start: 20130403
  8. NORMAL SALINE [Concomitant]
     Dosage: 100 UNK, UNK
  9. PROTONIX [Concomitant]
     Dosage: UNK
  10. LOVENOX [Concomitant]
     Dosage: 40 UNK, UNK
  11. DOCUSATE [Concomitant]
     Dosage: UNK

REACTIONS (2)
  - Cystitis haemorrhagic [Unknown]
  - Oxygen saturation decreased [Unknown]
